FAERS Safety Report 14600215 (Version 1)
Quarter: 2018Q1

REPORT INFORMATION
  Report Type: Spontaneous
  Country: ES (occurrence: ES)
  Receive Date: 20180305
  Receipt Date: 20180305
  Transmission Date: 20180509
  Serious: Yes (Death)
  Sender: FDA-Public Use
  Company Number: ES-SA-2018SA048153

PATIENT
  Age: 71 Year
  Sex: Male

DRUGS (8)
  1. GRANULOCYTE COLONY STIMULATING FACTOR [Suspect]
     Active Substance: GRANULOCYTE COLONY-STIMULATING FACTOR NOS
     Indication: CHLOROMA
     Dosage: ON DAYS 1-5
     Route: 065
  2. CYTARABINE. [Suspect]
     Active Substance: CYTARABINE
     Indication: CHLOROMA
     Route: 058
     Dates: start: 20160404
  3. FLUDARABINE PHOSPHATE. [Suspect]
     Active Substance: FLUDARABINE PHOSPHATE
     Indication: CHLOROMA
     Dosage: ON DAYS 1-4
     Route: 065
  4. FLUDARABINE PHOSPHATE. [Suspect]
     Active Substance: FLUDARABINE PHOSPHATE
     Indication: CHLOROMA
     Route: 048
     Dates: start: 20160404
  5. CYTARABINE. [Suspect]
     Active Substance: CYTARABINE
     Indication: CHLOROMA
     Dosage: ON DAYS 1-5
     Route: 065
     Dates: start: 201512
  6. IDARUBICIN [Suspect]
     Active Substance: IDARUBICIN
     Indication: CHLOROMA
     Dosage: ON DAYS 1 AND 3
     Route: 065
     Dates: start: 201512
  7. CYTARABINE. [Suspect]
     Active Substance: CYTARABINE
     Indication: CHLOROMA
     Dosage: ON DAYS 1-4 DOSE:2 GRAM(S)/SQUARE METER
     Route: 065
  8. IDARUBICIN [Suspect]
     Active Substance: IDARUBICIN
     Indication: CHLOROMA
     Dosage: ON DAYS 1-3
     Route: 065

REACTIONS (4)
  - Product use in unapproved indication [Fatal]
  - Recurrent cancer [Fatal]
  - Chloroma [Fatal]
  - Malignant neoplasm progression [Fatal]

NARRATIVE: CASE EVENT DATE: 201601
